FAERS Safety Report 9292679 (Version 1)
Quarter: 2013Q2

REPORT INFORMATION
  Report Type: Spontaneous
  Country: FR (occurrence: FR)
  Receive Date: 20130516
  Receipt Date: 20130516
  Transmission Date: 20140414
  Serious: Yes (Life-Threatening, Hospitalization)
  Sender: FDA-Public Use
  Company Number: FR-SANOFI-AVENTIS-2013SA049149

PATIENT
  Age: 85 Year
  Sex: Male

DRUGS (6)
  1. PLAVIX [Suspect]
     Indication: PRODUCT USED FOR UNKNOWN INDICATION
     Route: 048
     Dates: end: 20130220
  2. PREVISCAN [Suspect]
     Indication: PRODUCT USED FOR UNKNOWN INDICATION
     Route: 048
     Dates: end: 20130220
  3. ZOCOR [Concomitant]
     Route: 048
  4. LASILIX [Concomitant]
     Route: 048
  5. DIGOXINE [Concomitant]
     Route: 048
  6. SIMVASTATIN [Concomitant]
     Route: 048

REACTIONS (3)
  - Hypoprothrombinaemia [Recovered/Resolved]
  - Subdural haematoma [Recovered/Resolved]
  - Hemiplegia [Recovered/Resolved]
